FAERS Safety Report 5200034-3 (Version None)
Quarter: 2007Q1

REPORT INFORMATION
  Report Type: 
  Country: None (occurrence: None)
  Receive Date: 20070105
  Receipt Date: 20061226
  Transmission Date: 20070707
  Serious: Yes (Life-Threatening, Other)
  Sender: FDA-Public Use
  Company Number: US-ELI_LILLY_AND_COMPANY-US200611001604

PATIENT
  Age: 65 Year
  Sex: Female
  Weight: 93.424 kg

DRUGS (20)
  1. ALIMTA [Suspect]
     Indication: NON-SMALL CELL LUNG CANCER STAGE IV
     Dosage: 1000 MG, UNK
     Route: 042
     Dates: start: 20061013
  2. ALIMTA [Suspect]
     Dosage: 1000 MG, UNK
     Dates: start: 20061127
  3. VITAMIN B-12 [Concomitant]
     Dosage: 1000 U, UNK
     Route: 058
     Dates: start: 20060914
  4. FOLIC ACID [Concomitant]
     Dosage: 1 MG, DAILY (1/D)
     Route: 048
     Dates: start: 20060929
  5. LIPITOR [Concomitant]
  6. COZAAR [Concomitant]
  7. SENNA [Concomitant]
  8. ZETIA [Concomitant]
     Dates: start: 20060101
  9. VALISONE [Concomitant]
  10. NEXIUM [Concomitant]
  11. COUMADIN [Concomitant]
  12. PLAVIX                                  /UNK/ [Concomitant]
  13. LOPRESSOR [Concomitant]
  14. ASPIRIN [Concomitant]
  15. MAG-OX [Concomitant]
  16. CLOTRIMAZOLE [Concomitant]
  17. NAPROSYN [Concomitant]
  18. GEMZAR [Suspect]
     Indication: NON-SMALL CELL LUNG CANCER STAGE IV
     Dates: start: 20050701, end: 20051201
  19. CARBOPLATIN [Concomitant]
     Indication: NON-SMALL CELL LUNG CANCER STAGE IV
     Dates: start: 20050701, end: 20051201
  20. DECADRON [Concomitant]
     Indication: PROPHYLAXIS

REACTIONS (6)
  - CARDIAC ARREST [None]
  - KERATOACANTHOMA [None]
  - MYOCARDIAL INFARCTION [None]
  - PHOTOSENSITIVITY REACTION [None]
  - RASH PRURITIC [None]
  - SQUAMOUS CELL CARCINOMA [None]
